FAERS Safety Report 6532596-8 (Version None)
Quarter: 2010Q1

REPORT INFORMATION
  Report Type: 
  Country: None (occurrence: None)
  Receive Date: 20100111
  Receipt Date: 20091224
  Transmission Date: 20100710
  Serious: No
  Sender: FDA-Public Use
  Company Number: JP-ROCHE-678266

PATIENT
  Weight: 15 kg

DRUGS (4)
  1. TAMIFLU [Suspect]
     Indication: DRUG USE FOR UNKNOWN INDICATION
     Route: 048
  2. TAMIFLU [Suspect]
     Route: 048
  3. CALONAL [Concomitant]
     Dosage: DRUG NAME: CALONAL(ACETAMINOPHEN)
     Route: 065
  4. HOKUNALIN [Concomitant]
     Dosage: DRUG NAME: HOKUNALIN:TAPE(TULOBUTEROL) DRUG FORM: TAPE
     Route: 062

REACTIONS (2)
  - ACCIDENTAL OVERDOSE [None]
  - NO ADVERSE EVENT [None]
